FAERS Safety Report 5460143-0 (Version None)
Quarter: 2007Q3

REPORT INFORMATION
  Report Type: 
  Country: None (occurrence: None)
  Receive Date: 20070823
  Receipt Date: 20070307
  Transmission Date: 20080115
  Serious: Yes (Hospitalization)
  Sender: FDA-Public Use
  Company Number: WAES 0703USA01067

PATIENT
  Age: 91 Year
  Sex: Male

DRUGS (1)
  1. PROSCAR [Suspect]
     Dosage: 5 MG/DAILY/PO
     Route: 048

REACTIONS (3)
  - ADVERSE EVENT [None]
  - INCORRECT ROUTE OF DRUG ADMINISTRATION [None]
  - WRONG TECHNIQUE IN DRUG USAGE PROCESS [None]
